FAERS Safety Report 11554243 (Version 1)
Quarter: 2015Q3

REPORT INFORMATION
  Report Type: Spontaneous
  Country: GB (occurrence: GB)
  Receive Date: 20150925
  Receipt Date: 20150925
  Transmission Date: 20151125
  Serious: Yes (Other)
  Sender: FDA-Public Use
  Company Number: GB-TEVA-595147ACC

PATIENT
  Age: 23 Year
  Sex: Male

DRUGS (5)
  1. AMOXICILLIN. [Suspect]
     Active Substance: AMOXICILLIN
     Dates: start: 20150910
  2. COCODAMOL [Concomitant]
     Active Substance: ACETAMINOPHEN\CODEINE PHOSPHATE
     Dosage: TAKE 1 OR 2 FOUR TIMES A DAY.
     Dates: start: 20150910
  3. MOMETASONE [Concomitant]
     Active Substance: MOMETASONE
     Dosage: 3 X 30 PLEASE.
     Dates: start: 20150417
  4. ERYTHROMYCIN. [Concomitant]
     Active Substance: ERYTHROMYCIN
     Dosage: 4 DOSAGE FORMS DAILY;
     Dates: start: 20150910
  5. OLIVE OIL [Concomitant]
     Active Substance: OLIVE OIL
     Dosage: USE AS DIRECTED.
     Dates: start: 20150910

REACTIONS (3)
  - Diarrhoea [Recovered/Resolved]
  - Eczema [Recovered/Resolved]
  - Pruritus [Recovered/Resolved]

NARRATIVE: CASE EVENT DATE: 20150910
